FAERS Safety Report 7648604-7 (Version None)
Quarter: 2011Q3

REPORT INFORMATION
  Report Type: 
  Country: None (occurrence: None)
  Receive Date: 20110801
  Receipt Date: 20110718
  Transmission Date: 20111222
  Serious: No
  Sender: FDA-Public Use
  Company Number: PHHY2011DE41619

PATIENT
  Sex: Female

DRUGS (1)
  1. TASIGNA [Suspect]
     Dosage: 800 MG PER DAY
     Route: 048
     Dates: start: 20110224

REACTIONS (3)
  - EYE IRRITATION [None]
  - EYE PRURITUS [None]
  - RASH [None]
